FAERS Safety Report 18930998 (Version 2)
Quarter: 2021Q3

REPORT INFORMATION
  Report Type: Spontaneous
  Country: CA (occurrence: CA)
  Receive Date: 20210224
  Receipt Date: 20210911
  Transmission Date: 20211014
  Serious: Yes (Hospitalization, Other)
  Sender: FDA-Public Use
  Company Number: CA-TEVA-2021-CA-1881356

PATIENT
  Age: 84 Year
  Sex: Male

DRUGS (9)
  1. LOMUSTINE. [Suspect]
     Active Substance: LOMUSTINE
     Route: 065
  2. LIPITOR [Concomitant]
     Active Substance: ATORVASTATIN CALCIUM
     Route: 065
  3. METOPROLOL. [Concomitant]
     Active Substance: METOPROLOL
     Route: 065
  4. VENTOLIN [Concomitant]
     Active Substance: ALBUTEROL SULFATE
     Route: 065
  5. CEENU [Suspect]
     Active Substance: LOMUSTINE
     Route: 065
  6. EZETROL [Concomitant]
     Active Substance: EZETIMIBE
     Route: 065
  7. TRAVATAN [Concomitant]
     Active Substance: TRAVOPROST
     Route: 065
  8. PANTOLOC [Concomitant]
     Active Substance: PANTOPRAZOLE SODIUM
     Route: 065
  9. ETOPOSIDE. [Suspect]
     Active Substance: ETOPOSIDE
     Route: 065

REACTIONS (3)
  - Pneumonia [Unknown]
  - Confusional state [Unknown]
  - Febrile neutropenia [Unknown]
